FAERS Safety Report 6801637-2 (Version None)
Quarter: 2010Q2

REPORT INFORMATION
  Report Type: 
  Country: None (occurrence: None)
  Receive Date: 20100629
  Receipt Date: 20100618
  Transmission Date: 20101027
  Serious: Yes (Hospitalization)
  Sender: FDA-Public Use
  Company Number: BE-WYE-H15805710

PATIENT
  Age: 74 Year
  Sex: Male

DRUGS (3)
  1. PANTOMED [Suspect]
     Indication: GASTROOESOPHAGEAL REFLUX DISEASE
     Route: 048
     Dates: start: 20100101
  2. VITAMIN C [Concomitant]
     Dosage: 125 MCG, FREQUENCY UNKNOWN
  3. EMCONCOR [Concomitant]
     Dosage: 1.25 MG, FREQUENCY UNKNOWN

REACTIONS (1)
  - ILEUS [None]
